FAERS Safety Report 12542489 (Version 1)
Quarter: 2016Q3

REPORT INFORMATION
  Report Type: Spontaneous
  Country: JP (occurrence: JP)
  Receive Date: 20160709
  Receipt Date: 20160709
  Transmission Date: 20161109
  Serious: Yes (Death)
  Sender: FDA-Public Use
  Company Number: JP-CIPLA LTD.-2014JP00002

PATIENT

DRUGS (3)
  1. AMRUBICIN [Suspect]
     Active Substance: AMRUBICIN
     Indication: SMALL CELL LUNG CANCER
     Dosage: 40 MG/M2, ON DAYS 1 TO 3
     Route: 042
  2. FILGRASTIM [Concomitant]
     Active Substance: FILGRASTIM
     Indication: PROPHYLAXIS
     Dosage: 75 MG/BODY/DAY, WAS ADMINISTERED ON DAYS 4 TO 7 AND 9 TO 15.
     Route: 065
  3. IRINOTECAN [Suspect]
     Active Substance: IRINOTECAN
     Indication: SMALL CELL LUNG CANCER
     Dosage: 50 MG/M2, (60 MIN) ON DAYS 1 AND 8
     Route: 042

REACTIONS (2)
  - Diarrhoea [Fatal]
  - Neutropenia [Fatal]
